FAERS Safety Report 7942759-2 (Version None)
Quarter: 2011Q4

REPORT INFORMATION
  Report Type: 
  Country: None (occurrence: None)
  Receive Date: 20111128
  Receipt Date: 20111012
  Transmission Date: 20120403
  Serious: No
  Sender: FDA-Public Use
  Company Number: US-BAYER-2011-099799

PATIENT
  Age: 75 Year
  Sex: Female
  Weight: 49 kg

DRUGS (6)
  1. CALCIUM [Concomitant]
  2. VITAMIN D [Concomitant]
  3. MUSCLE RELAXANT [Concomitant]
  4. MULTI-VITAMIN [Concomitant]
  5. LIPITOR [Concomitant]
  6. ALEVE (CAPLET) [Suspect]
     Indication: BACK PAIN
     Dosage: 1 DF, BID
     Route: 048
     Dates: start: 20111008, end: 20111012

REACTIONS (1)
  - BACK PAIN [None]
